FAERS Safety Report 5326567-7 (Version None)
Quarter: 2007Q2

REPORT INFORMATION
  Report Type: 
  Country: None (occurrence: None)
  Receive Date: 20070516
  Receipt Date: 20070503
  Transmission Date: 20071010
  Serious: Yes (Other)
  Sender: FDA-Public Use
  Company Number: PHEH2007US07170

PATIENT
  Age: 64 Year
  Sex: Male
  Weight: 130.43 kg

DRUGS (9)
  1. ZOLEDRONATE [Suspect]
     Indication: METASTASES TO BONE
     Dosage: 4 MG MONTHLY
     Route: 042
     Dates: start: 20051116, end: 20060918
  2. CITALOPRAM HYDROBROMIDE [Concomitant]
     Dates: start: 20060327
  3. METHADONE HCL [Concomitant]
     Dates: start: 20050101
  4. GOSERELIN ACETATE [Concomitant]
     Dates: start: 20060601
  5. DARBEPOETIN ALFA [Concomitant]
     Dates: start: 20060601
  6. WARFARIN SODIUM [Concomitant]
     Dates: start: 20060301
  7. RANITIDINE [Concomitant]
     Dates: start: 20040701
  8. OXYCODONE HCL [Concomitant]
     Dates: start: 20030101
  9. OXYCODONE HCL [Concomitant]
     Dates: start: 20030101

REACTIONS (2)
  - BONE DISORDER [None]
  - TOOTH EXTRACTION [None]
